FAERS Safety Report 6501042 (Version 2)
Quarter: 2016Q3

REPORT INFORMATION
  Report Type: Report from Study
  Country: JP (occurrence: JP)
  Receive Date: 20071214
  Receipt Date: 20160712
  Transmission Date: 20161109
  Serious: Yes (Other)
  Sender: FDA-Public Use
  Company Number: JP-NOVOPROD-270042

PATIENT
  Age: 11 Year
  Sex: Male
  Weight: 24 kg

DRUGS (2)
  1. THYRADIN S [Concomitant]
     Active Substance: LEVOTHYROXINE SODIUM
     Dosage: 2.0-2.5 UG, QD
     Route: 048
     Dates: start: 20041019
  2. NORDITROPIN NORDIFLEX CHU [Suspect]
     Active Substance: SOMATROPIN
     Indication: GROWTH HORMONE DEFICIENCY
     Dosage: 4.2 MG, QD
     Route: 058
     Dates: start: 20041105

REACTIONS (1)
  - Knee deformity [Not Recovered/Not Resolved]

NARRATIVE: CASE EVENT DATE: 20061212
